FAERS Safety Report 8268141-9 (Version None)
Quarter: 2012Q2

REPORT INFORMATION
  Report Type: 
  Country: None (occurrence: None)
  Receive Date: 20120409
  Receipt Date: 20120404
  Transmission Date: 20120825
  Serious: No
  Sender: FDA-Public Use
  Company Number: US-PFIZER INC-2012060286

PATIENT
  Sex: Female

DRUGS (2)
  1. PROTONIX [Suspect]
     Indication: BARRETT'S OESOPHAGUS
     Dosage: 40 MG, 1X/DAY
     Route: 048
  2. PROTONIX [Suspect]
     Dosage: UNK

REACTIONS (2)
  - DRUG INEFFECTIVE [None]
  - ABDOMINAL PAIN UPPER [None]
